FAERS Safety Report 4556830-9 (Version None)
Quarter: 2005Q1

REPORT INFORMATION
  Report Type: 
  Country: None (occurrence: None)
  Receive Date: 20050118
  Receipt Date: 20050111
  Transmission Date: 20050727
  Serious: Yes (Death)
  Sender: FDA-Public Use
  Company Number: 163-20785-04080549

PATIENT
  Age: 82 Year
  Sex: Female

DRUGS (2)
  1. THALOMID [Suspect]
     Indication: MYELODYSPLASTIC SYNDROME
     Dosage: 50 MG, QD, ORAL
     Route: 048
     Dates: start: 20031006, end: 20031016
  2. DEFEROXAMINE (DEFEROXAMINE) [Concomitant]

REACTIONS (6)
  - DISEASE PROGRESSION [None]
  - HEPATIC FAILURE [None]
  - LEUKAEMIA [None]
  - NERVOUSNESS [None]
  - RASH GENERALISED [None]
  - RASH PRURITIC [None]
